FAERS Safety Report 15111664 (Version 1)
Quarter: 2018Q2

REPORT INFORMATION
  Report Type: Spontaneous
  Country: US (occurrence: US)
  Receive Date: 20180612
  Receipt Date: 20180612
  Transmission Date: 20180711
  Serious: Yes (Disabling, Other)
  Sender: FDA-Public Use
  Company Number: None

PATIENT
  Age: 74 Year
  Sex: Male
  Weight: 104.85 kg

DRUGS (1)
  1. FUNGI NAIL TOE AND FOOT PEN [Suspect]
     Active Substance: UNDECYLENIC ACID
     Indication: ONYCHOMYCOSIS
     Dosage: ON THE NAIL AND SKIN?
     Route: 061

REACTIONS (2)
  - Peripheral swelling [None]
  - Erythema [None]
